FAERS Safety Report 6014729-5 (Version None)
Quarter: 2008Q4

REPORT INFORMATION
  Report Type: 
  Country: None (occurrence: None)
  Receive Date: 20081219
  Receipt Date: 20081212
  Transmission Date: 20090506
  Serious: Yes (Other)
  Sender: FDA-Public Use
  Company Number: US-WYE-H07168308

PATIENT
  Sex: Male
  Weight: 55.3 kg

DRUGS (11)
  1. EFFEXOR XR [Suspect]
     Dosage: UNSPECIFIED
     Dates: end: 20081001
  2. SEROQUEL [Suspect]
     Dosage: UNSPECIFIED
     Dates: end: 20081001
  3. CITALOPRAM [Concomitant]
     Dosage: UNSPECIFIED
     Dates: start: 20081001
  4. CLONAZEPAM [Concomitant]
     Dosage: UNSPECIFIED
     Dates: start: 20081001
  5. ABILIFY [Concomitant]
     Dosage: UNSPECIFIED
  6. EPIVIR [Concomitant]
     Dosage: UNSPECIFIED
  7. ACETYLSALICYLIC ACID [Concomitant]
     Dosage: UNSPECIFIED
  8. LIPITOR [Concomitant]
     Dosage: UNSPECIFIED
  9. LISINOPRIL [Concomitant]
     Dosage: UNSPECIFIED
  10. CHANTIX [Suspect]
     Indication: SMOKING CESSATION THERAPY
     Dosage: UNSPECIFIED
     Dates: start: 20081001
  11. REYATAZ [Concomitant]
     Dosage: UNSPECIFIED

REACTIONS (1)
  - PSYCHIATRIC SYMPTOM [None]
